FAERS Safety Report 5775793-1 (Version None)
Quarter: 2008Q2

REPORT INFORMATION
  Report Type: 
  Country: None (occurrence: None)
  Receive Date: 20080617
  Receipt Date: 20080528
  Transmission Date: 20081010
  Serious: No
  Sender: FDA-Public Use
  Company Number: US-BOEHRINGER INGELHEIM GMBH, GERMANY-2008-BP-08341BP

PATIENT
  Age: 73 Year
  Sex: Female

DRUGS (4)
  1. ZANTAC 150 [Suspect]
     Indication: HIATUS HERNIA
     Route: 048
     Dates: start: 20071001, end: 20071101
  2. ZANTAC 150 [Suspect]
     Indication: GASTROOESOPHAGEAL REFLUX DISEASE
  3. ZANTAC 150 [Suspect]
     Indication: CROHN'S DISEASE
  4. DONNATAL [Concomitant]
     Indication: ABDOMINAL PAIN UPPER

REACTIONS (1)
  - DRUG INEFFECTIVE [None]
